FAERS Safety Report 13133079 (Version 1)
Quarter: 2017Q1

REPORT INFORMATION
  Report Type: Spontaneous
  Country: US (occurrence: US)
  Receive Date: 20170118
  Receipt Date: 20170118
  Transmission Date: 20170428
  Serious: Yes (Death)
  Sender: FDA-Public Use
  Company Number: None

PATIENT
  Age: 64 Year
  Sex: Male

DRUGS (1)
  1. SUTENT [Suspect]
     Active Substance: SUNITINIB MALATE
     Indication: NEOPLASM MALIGNANT
     Dosage: 50MG DAILY FOR 4 WEEKS THEN  14 DAYS OFF BY MOUTH
     Route: 048
     Dates: start: 20160901, end: 20161223

REACTIONS (1)
  - Death [None]

NARRATIVE: CASE EVENT DATE: 20170116
